FAERS Safety Report 4577030-2 (Version None)
Quarter: 2005Q1

REPORT INFORMATION
  Report Type: 
  Country: None (occurrence: None)
  Receive Date: 20050208
  Receipt Date: 20050119
  Transmission Date: 20050727
  Serious: Yes (Hospitalization)
  Sender: FDA-Public Use
  Company Number: CEL-2005-00094-ROC

PATIENT
  Age: 32 Year
  Sex: Male

DRUGS (5)
  1. METHYLPHENIDATE 20 MG ER TABLETS (METHYLPHENIDATE HYDROCHLORIDE) [Suspect]
     Indication: ATTENTION DEFICIT/HYPERACTIVITY DISORDER
     Dosage: SEE IMAGE
     Dates: start: 20041201
  2. AMITRIPTYLINE (AMITRIPTYLINE) [Concomitant]
  3. SEROQUEL [Concomitant]
  4. DEPAKOTE [Concomitant]
  5. LITHIUM ER (LITHIUM) [Concomitant]

REACTIONS (1)
  - GASTROINTESTINAL HAEMORRHAGE [None]
